FAERS Safety Report 11797056 (Version 1)
Quarter: 2015Q4

REPORT INFORMATION
  Report Type: Spontaneous
  Country: DE (occurrence: DE)
  Receive Date: 20151203
  Receipt Date: 20151203
  Transmission Date: 20160305
  Serious: Yes (Hospitalization)
  Sender: FDA-Public Use
  Company Number: DE-PFIZER INC-2015402575

PATIENT
  Age: 79 Year
  Sex: Female

DRUGS (9)
  1. SEROQUEL [Suspect]
     Active Substance: QUETIAPINE FUMARATE
     Dosage: 225 MG, 1X/DAY
     Route: 048
     Dates: start: 2014, end: 20150729
  2. SEROQUEL XR [Suspect]
     Active Substance: QUETIAPINE FUMARATE
     Dosage: 100 MG, 1X/DAY
     Route: 048
     Dates: start: 20150730, end: 20150805
  3. SEROQUEL XR [Suspect]
     Active Substance: QUETIAPINE FUMARATE
     Dosage: 300 MG, 1X/DAY (0-0-1-0)
     Route: 048
     Dates: start: 20150813
  4. TOREM [Concomitant]
     Active Substance: TORSEMIDE
     Dosage: 5 MG, 1X/DAY
     Route: 048
     Dates: start: 2014
  5. LYRICA [Suspect]
     Active Substance: PREGABALIN
     Dosage: 50 MG, 1X/DAY
     Route: 048
     Dates: start: 20150916, end: 20150918
  6. SEROQUEL XR [Suspect]
     Active Substance: QUETIAPINE FUMARATE
     Dosage: 200 MG, 1X/DAY
     Route: 048
     Dates: start: 20150806, end: 20150812
  7. SEROQUEL [Suspect]
     Active Substance: QUETIAPINE FUMARATE
     Dosage: 25 MG, 4X/DAY (1-1-1-1)
     Route: 048
     Dates: start: 20150730
  8. SEROQUEL XR [Suspect]
     Active Substance: QUETIAPINE FUMARATE
     Dosage: 50 MG, 1X/DAY
     Route: 048
     Dates: start: 20150727, end: 20150729
  9. ASPIRIN. [Concomitant]
     Active Substance: ASPIRIN
     Dosage: 100 MG, 1X/DAY
     Route: 048
     Dates: start: 2014

REACTIONS (2)
  - Fall [Recovered/Resolved]
  - Pelvic fracture [Recovered/Resolved]

NARRATIVE: CASE EVENT DATE: 20150916
